FAERS Safety Report 24209862 (Version 1)
Quarter: 2024Q3

REPORT INFORMATION
  Report Type: Spontaneous
  Country: US (occurrence: None)
  Receive Date: 20240813
  Receipt Date: 20240813
  Transmission Date: 20241017
  Serious: Yes (Congenital Anomaly)
  Sender: Public
  Company Number: None

PATIENT
  Age: 41 Year
  Sex: Male
  Weight: 89.1 kg

DRUGS (1)
  1. FINASTERIDE [Suspect]
     Active Substance: FINASTERIDE
     Indication: Alopecia
     Dosage: 1 TABLET ORAL
     Route: 048
     Dates: start: 20180801, end: 20240812

REACTIONS (2)
  - Maternal exposure via partner during pregnancy [None]
  - Semen volume decreased [None]

NARRATIVE: CASE EVENT DATE: 20240307
